FAERS Safety Report 8608595-9 (Version None)
Quarter: 2012Q3

REPORT INFORMATION
  Report Type: 
  Country: None (occurrence: None)
  Receive Date: 20120821
  Receipt Date: 20120810
  Transmission Date: 20120928
  Serious: Yes (Death, Hospitalization)
  Sender: FDA-Public Use
  Company Number: FR-SANOFI-AVENTIS-2012SA008313

PATIENT
  Age: 82 Year
  Sex: Female

DRUGS (2)
  1. IXABEPILONE [Suspect]
     Route: 042
     Dates: start: 20100602, end: 20111214
  2. KAYEXALATE [Suspect]

REACTIONS (3)
  - HYPERKALAEMIA [None]
  - DEATH [None]
  - HYPOKALAEMIA [None]
